FAERS Safety Report 15448614 (Version 1)
Quarter: 2018Q3

REPORT INFORMATION
  Report Type: Spontaneous
  Country: AU (occurrence: AU)
  Receive Date: 20180929
  Receipt Date: 20180929
  Transmission Date: 20181010
  Serious: Yes (Other)
  Sender: FDA-Public Use
  Company Number: AU-009507513-1809AUS012831

PATIENT
  Age: 25 Year
  Sex: Female

DRUGS (4)
  1. ADVANTAN [Suspect]
     Active Substance: METHYLPREDNISOLONE ACEPONATE
     Indication: ECZEMA
     Dosage: APPLY A THIN FILM AS OFTEN AS NEEDED, 2 APPLICATION DAILY.
     Dates: start: 1999, end: 2003
  2. DIPROSONE [Suspect]
     Active Substance: BETAMETHASONE DIPROPIONATE
     Indication: ECZEMA
     Dosage: UNK, QD
     Dates: start: 2003, end: 2010
  3. ELOCON [Suspect]
     Active Substance: MOMETASONE FUROATE
     Indication: ECZEMA
     Dosage: ONCE DAILY. 3: 1 APPLICATION DAILY.
     Dates: start: 2010, end: 2014
  4. ELOCON [Suspect]
     Active Substance: MOMETASONE FUROATE
     Indication: DRY SKIN

REACTIONS (10)
  - Erythema [Recovering/Resolving]
  - Blister [Recovering/Resolving]
  - Dry skin [Recovering/Resolving]
  - Skin atrophy [Recovering/Resolving]
  - Skin swelling [Recovering/Resolving]
  - Fatigue [Recovering/Resolving]
  - Chapped lips [Recovering/Resolving]
  - Pruritus [Recovering/Resolving]
  - Skin discolouration [Recovering/Resolving]
  - Nail discolouration [Recovering/Resolving]

NARRATIVE: CASE EVENT DATE: 1999
